FAERS Safety Report 10346376 (Version 1)
Quarter: 2014Q3

REPORT INFORMATION
  Report Type: Spontaneous
  Country: US (occurrence: US)
  Receive Date: 20140728
  Receipt Date: 20140728
  Transmission Date: 20150326
  Serious: No
  Sender: FDA-Public Use
  Company Number: US-009507513-1407USA012422

PATIENT
  Age: 67 Year
  Sex: Male

DRUGS (6)
  1. BESIVANCE [Concomitant]
     Active Substance: BESIFLOXACIN
  2. ZONISAMIDE. [Concomitant]
     Active Substance: ZONISAMIDE
  3. JANUVIA [Suspect]
     Active Substance: SITAGLIPTIN PHOSPHATE
     Indication: TYPE 2 DIABETES MELLITUS
     Dosage: 100 MG, QD
     Route: 048
     Dates: start: 2011
  4. JANUVIA [Suspect]
     Active Substance: SITAGLIPTIN PHOSPHATE
     Dosage: 25 MG, QD
     Route: 048
  5. ALLOPURINOL. [Concomitant]
     Active Substance: ALLOPURINOL
  6. PROLENSA [Concomitant]
     Active Substance: BROMFENAC SODIUM
     Dosage: UNK
     Dates: end: 2014

REACTIONS (5)
  - Superficial injury of eye [Not Recovered/Not Resolved]
  - Hypoglycaemia [Unknown]
  - Corneal irritation [Recovered/Resolved]
  - Cataract operation [Unknown]
  - Corneal abrasion [Recovered/Resolved]

NARRATIVE: CASE EVENT DATE: 20140630
